FAERS Safety Report 25593184 (Version 2)
Quarter: 2025Q3

REPORT INFORMATION
  Report Type: Spontaneous
  Country: EU (occurrence: EU)
  Receive Date: 20250722
  Receipt Date: 20250807
  Transmission Date: 20251021
  Serious: Yes (Life-Threatening, Hospitalization, Other)
  Sender: PURDUE
  Company Number: EU-SOL-20250238

PATIENT
  Age: 38 Year
  Sex: Female

DRUGS (16)
  1. MORPHINE SULFATE [Suspect]
     Active Substance: MORPHINE SULFATE
     Indication: Pulmonary oedema
     Route: 065
  2. MORPHINE SULFATE [Suspect]
     Active Substance: MORPHINE SULFATE
     Indication: Pulmonary oedema
     Route: 065
  3. OXYGEN [Suspect]
     Active Substance: OXYGEN
     Indication: Pulmonary oedema
  4. OXYGEN [Suspect]
     Active Substance: OXYGEN
  5. OXYGEN [Suspect]
     Active Substance: OXYGEN
  6. THIOPENTAL [Suspect]
     Active Substance: THIOPENTAL
     Indication: Acute respiratory failure
     Route: 065
  7. THIOPENTAL [Suspect]
     Active Substance: THIOPENTAL
     Indication: Acute respiratory failure
  8. FENTANYL [Suspect]
     Active Substance: FENTANYL
     Indication: Acute respiratory failure
     Route: 065
  9. FENTANYL [Suspect]
     Active Substance: FENTANYL
     Indication: Off label use
  10. FENTANYL [Suspect]
     Active Substance: FENTANYL
     Indication: Off label use
  11. ROCURONIUM BROMIDE [Suspect]
     Active Substance: ROCURONIUM BROMIDE
     Indication: Acute respiratory failure
     Route: 065
  12. ROCURONIUM BROMIDE [Suspect]
     Active Substance: ROCURONIUM BROMIDE
     Indication: Acute respiratory failure
  13. EPINEPHRINE [Suspect]
     Active Substance: EPINEPHRINE
     Indication: Resuscitation
     Route: 065
  14. EPINEPHRINE [Suspect]
     Active Substance: EPINEPHRINE
     Indication: Cardiac arrest
     Route: 065
  15. TORECAN [Suspect]
     Active Substance: THIETHYLPERAZINE MALATE
     Indication: Pulmonary oedema
     Route: 042
  16. FUROSEMIDE [Suspect]
     Active Substance: FUROSEMIDE
     Indication: Pulmonary oedema
     Route: 042

REACTIONS (10)
  - Acute respiratory failure [Recovering/Resolving]
  - Cardiac arrest [Recovering/Resolving]
  - Cardiomyopathy [Recovering/Resolving]
  - Drug ineffective [Recovering/Resolving]
  - Maternal exposure during pregnancy [Recovering/Resolving]
  - Bradycardia [Recovering/Resolving]
  - Ventricular tachycardia [Recovering/Resolving]
  - Pulseless electrical activity [Recovered/Resolved]
  - Off label use [Unknown]
  - Off label use [Unknown]
